FAERS Safety Report 16034677 (Version 1)
Quarter: 2019Q2

REPORT INFORMATION
  Report Type: Spontaneous
  Country: US (occurrence: US)
  Receive Date: 20190305
  Receipt Date: 20190305
  Transmission Date: 20190711
  Serious: Yes (Hospitalization)
  Sender: FDA-Public Use
  Company Number: None

PATIENT
  Age: 59 Year
  Sex: Female

DRUGS (18)
  1. PREDNISONE 10MG PACK [Concomitant]
     Dates: start: 20190219
  2. FERROUS SULFATE 324MG EC TABLETS [Concomitant]
     Dates: start: 20190219
  3. GINGKO 60 MG TABLETS [Concomitant]
     Dates: start: 20190219
  4. OMEPRAZOLE 40 MG TABLETS [Concomitant]
     Dates: start: 20190219
  5. PRAZOSIN 1 MG CAP [Concomitant]
     Dates: start: 20190219
  6. VITAMIN D CAP 2000 UNITS [Concomitant]
     Dates: start: 20190219
  7. QUETAPINE 300 MG TABLETS [Concomitant]
     Dates: start: 20190219
  8. PROMETHAZINE 25 MG TABLETS [Concomitant]
     Dates: start: 20190219
  9. KETOROLAC 10MG TABLETS [Concomitant]
     Dates: start: 20190219
  10. DEPAKOTE 125MG TABLETS [Concomitant]
     Dates: start: 20190219
  11. ZOMIG SPRINKLES 2.5 MG [Concomitant]
     Dates: start: 20190219
  12. AZITHROMYCIN 1 G PACK [Concomitant]
     Dates: start: 20190219
  13. ARMOUR THYROID 30 MG TABLETS [Concomitant]
     Dates: start: 20190219
  14. PILOCARPINE 5MG TABLETS [Concomitant]
     Dates: start: 20190219
  15. ALBUTEROL HFA [Concomitant]
     Active Substance: ALBUTEROL SULFATE
     Dates: start: 20190219
  16. XELJANZ XR [Suspect]
     Active Substance: TOFACITINIB CITRATE
     Indication: RHEUMATOID ARTHRITIS
     Route: 048
  17. CYCLOBENZAPRINE 10 MG TABLETS [Concomitant]
     Dates: start: 20190219
  18. ADDERRALL 30 MG CAPS [Concomitant]
     Dates: start: 20190219

REACTIONS (8)
  - Peripheral swelling [None]
  - Chest pain [None]
  - Swelling face [None]
  - Dyspnoea [None]
  - Fluid retention [None]
  - Weight increased [None]
  - Blood creatine phosphokinase increased [None]
  - Localised infection [None]

NARRATIVE: CASE EVENT DATE: 20190123
